FAERS Safety Report 7907404-0 (Version None)
Quarter: 2011Q4

REPORT INFORMATION
  Report Type: 
  Country: None (occurrence: None)
  Receive Date: 20111109
  Receipt Date: 20111025
  Transmission Date: 20120403
  Serious: Yes (Other)
  Sender: FDA-Public Use
  Company Number: 2011S1001488

PATIENT
  Age: 32 Year
  Sex: Male

DRUGS (4)
  1. LIVALO [Suspect]
     Indication: HYPERCHOLESTEROLAEMIA
     Dosage: 2 MG;1X;PO
     Route: 048
     Dates: start: 20110922, end: 20111020
  2. LORELCO [Suspect]
     Indication: HYPERCHOLESTEROLAEMIA
     Dosage: 250 MG;BID;PO
     Route: 048
     Dates: start: 20110519, end: 20111020
  3. EPADEL-S [Concomitant]
  4. CHOLEBRINE [Concomitant]

REACTIONS (3)
  - MALAISE [None]
  - HEPATITIS [None]
  - BLOOD CHOLESTEROL INCREASED [None]
